FAERS Safety Report 6522553-X (Version None)
Quarter: 2009Q4

REPORT INFORMATION
  Report Type: 
  Country: None (occurrence: None)
  Receive Date: 20091230
  Receipt Date: 20091225
  Transmission Date: 20100525
  Serious: Yes (Hospitalization)
  Sender: FDA-Public Use
  Company Number: JP-MERCK-0910USA01689

PATIENT
  Age: 85 Year
  Sex: Female

DRUGS (3)
  1. FOSAMAX [Suspect]
     Indication: OSTEOPOROSIS
     Route: 048
     Dates: start: 20090928, end: 20091005
  2. FOSAMAX [Suspect]
     Route: 048
     Dates: start: 20070927, end: 20090915
  3. BENET [Suspect]
     Indication: OSTEOPOROSIS
     Route: 048
     Dates: start: 20070710, end: 20070910

REACTIONS (3)
  - FEMORAL NECK FRACTURE [None]
  - OSTEOMYELITIS [None]
  - OSTEONECROSIS [None]
